FAERS Safety Report 23452753 (Version 1)
Quarter: 2024Q1

REPORT INFORMATION
  Report Type: Spontaneous
  Country: US (occurrence: US)
  Receive Date: 20240129
  Receipt Date: 20240129
  Transmission Date: 20240410
  Serious: No
  Sender: FDA-Public Use
  Company Number: US-SAREPTA THERAPEUTICS INC.-SRP2023-003852

PATIENT
  Age: 13 Year
  Sex: Male
  Weight: 92 kg

DRUGS (10)
  1. AMONDYS 45 [Suspect]
     Active Substance: CASIMERSEN
     Indication: Duchenne muscular dystrophy
     Dosage: 2700 MILLIGRAM, WEEKLY
     Route: 042
     Dates: start: 20210810, end: 20230919
  2. AMONDYS 45 [Suspect]
     Active Substance: CASIMERSEN
     Dosage: 2700 MILLIGRAM, WEEKLY
     Route: 042
     Dates: start: 20231003
  3. BROMPHENIRAMINE MALEATE\PHENYLEPHRINE HYDROCHLORIDE [Concomitant]
     Active Substance: BROMPHENIRAMINE MALEATE\PHENYLEPHRINE HYDROCHLORIDE
     Indication: Product used for unknown indication
     Dosage: 1-2.5 MILLIGRAM/5ML, Q4H, PRN
     Route: 048
  4. CALCIUM CARBONATE [Concomitant]
     Active Substance: CALCIUM CARBONATE
     Indication: Product used for unknown indication
     Dosage: 750 MILLIGRAM, BID
     Route: 048
  5. IBUPROFEN [Concomitant]
     Active Substance: IBUPROFEN
     Indication: Product used for unknown indication
     Dosage: 100 MILLIGRAM/5ML
     Route: 048
  6. PREDNISONE [Concomitant]
     Active Substance: PREDNISONE
     Indication: Product used for unknown indication
     Dosage: 40 MILLIGRAM (20 MG, 2 TABS), QD
     Route: 048
     Dates: start: 20210324
  7. DEFLAZACORT [Concomitant]
     Active Substance: DEFLAZACORT
     Indication: Adrenal insufficiency
     Dosage: 36 MILLIGRAM, QD
     Dates: start: 20220426
  8. DEFLAZACORT [Concomitant]
     Active Substance: DEFLAZACORT
     Indication: Stress
  9. HYDROCORTISONE SODIUM SUCCINATE [Concomitant]
     Active Substance: HYDROCORTISONE SODIUM SUCCINATE
     Indication: Product used for unknown indication
     Dosage: UNK
     Dates: start: 20220426
  10. CULTURELLE [Concomitant]
     Active Substance: LACTOBACILLUS RHAMNOSUS
     Indication: Product used for unknown indication
     Dosage: 1 PACKET, QD
     Route: 048
     Dates: start: 20220511

REACTIONS (2)
  - Product dose omission issue [Unknown]
  - No adverse event [Unknown]

NARRATIVE: CASE EVENT DATE: 20230927
